FAERS Safety Report 20617750 (Version 2)
Quarter: 2022Q2

REPORT INFORMATION
  Report Type: Report from Study
  Country: AR (occurrence: AR)
  Receive Date: 20220321
  Receipt Date: 20220402
  Transmission Date: 20220721
  Serious: Yes (Other)
  Sender: FDA-Public Use
  Company Number: AR-NOVARTISPH-NVSC2022AR063221

PATIENT
  Sex: Female

DRUGS (2)
  1. DIOVAN [Suspect]
     Active Substance: VALSARTAN
     Indication: Hypertension
     Dosage: HALF OF 160 MG, QD (IN THE MORNING EVERY DAY)
     Route: 065
     Dates: start: 2006
  2. DIOVAN [Suspect]
     Active Substance: VALSARTAN
     Dosage: UNK
     Route: 065

REACTIONS (4)
  - Cataract [Unknown]
  - COVID-19 [Unknown]
  - Fear [Unknown]
  - Mood altered [Unknown]
